FAERS Safety Report 10067172 (Version 1)
Quarter: 2014Q2

REPORT INFORMATION
  Report Type: Spontaneous
  Country: US (occurrence: None)
  Receive Date: 20140408
  Receipt Date: 20140408
  Transmission Date: 20141212
  Serious: Yes (Life-Threatening, Other)
  Sender: FDA-Public Use
  Company Number: None

PATIENT
  Age: 42 Year
  Sex: Male
  Weight: 81.65 kg

DRUGS (2)
  1. CYMBALTA [Suspect]
     Indication: DEPRESSION
     Dosage: 1 CAPSULE ONCE DAILY TAKEN BY MOUTH
     Route: 048
     Dates: start: 20100101, end: 20131111
  2. CYMBALTA [Suspect]
     Indication: MULTIPLE SCLEROSIS
     Dosage: 1 CAPSULE ONCE DAILY TAKEN BY MOUTH
     Route: 048
     Dates: start: 20100101, end: 20131111

REACTIONS (5)
  - Drug withdrawal syndrome [None]
  - Bipolar disorder [None]
  - Suicidal ideation [None]
  - Depression [None]
  - Paraesthesia [None]
